FAERS Safety Report 5088641-2 (Version None)
Quarter: 2006Q3

REPORT INFORMATION
  Report Type: 
  Country: None (occurrence: None)
  Receive Date: 20060825
  Receipt Date: 20060805
  Transmission Date: 20061208
  Serious: Yes (Death)
  Sender: FDA-Public Use
  Company Number: PHHO2006BR12757

PATIENT
  Age: 72 Year
  Sex: Male

DRUGS (1)
  1. ZELMAC / HTF 919A [Suspect]
     Indication: GASTROINTESTINAL DISORDER
     Dosage: 6 MG, UNK
     Route: 048
     Dates: start: 20060530

REACTIONS (1)
  - CEREBROVASCULAR ACCIDENT [None]
